FAERS Safety Report 21181514 (Version 2)
Quarter: 2022Q4

REPORT INFORMATION
  Report Type: Spontaneous
  Country: US (occurrence: US)
  Receive Date: 20220806
  Receipt Date: 20221006
  Transmission Date: 20230112
  Serious: No
  Sender: FDA-Public Use
  Company Number: US-SA-SAC20220729001624

PATIENT
  Sex: Female

DRUGS (1)
  1. DUPIXENT [Suspect]
     Active Substance: DUPILUMAB
     Indication: Asthma
     Dosage: 300 MG, QOW
     Route: 058

REACTIONS (8)
  - Weight increased [Unknown]
  - Arthritis [Unknown]
  - Fibromyalgia [Unknown]
  - Fall [Unknown]
  - Accident [Unknown]
  - Joint injury [Unknown]
  - Injection site pain [Unknown]
  - Product preparation error [Unknown]
